FAERS Safety Report 8878714 (Version 1)
Quarter: 2012Q4

REPORT INFORMATION
  Report Type: 
  Country: US (occurrence: US)
  Receive Date: 20121025
  Receipt Date: 20121025
  Transmission Date: 20130627
  Serious: No
  Sender: FDA-Public Use
  Company Number: US-AMGEN-USASP2012016619

PATIENT
  Age: 70 Year
  Sex: Female
  Weight: 62.13 kg

DRUGS (13)
  1. ENBREL [Suspect]
     Indication: PRODUCT USED FOR UNKNOWN INDICATION
     Dosage: 50 mg, qwk
     Route: 058
  2. FLONASE [Concomitant]
     Dosage: 0.05 %, UNK
  3. VITAMIN D3 [Concomitant]
     Dosage: UNK
  4. BACLOFEN [Concomitant]
     Dosage: 10 mg, UNK
  5. ZETIA [Concomitant]
     Dosage: 10 mg, UNK
  6. TOPAMAX [Concomitant]
     Dosage: 25 mg, UNK
  7. OMEGA-3                            /01168901/ [Concomitant]
     Dosage: UNK
  8. CELEXA                             /01400501/ [Concomitant]
     Dosage: 40 mg, UNK
  9. NEXIUM                             /01479302/ [Concomitant]
     Dosage: 20 mg, UNK
  10. METFORMIN [Concomitant]
     Dosage: 850 mg, UNK
  11. VITAMIN D /00107901/ [Concomitant]
     Dosage: UNK
  12. ASPIRIN LOW [Concomitant]
     Dosage: 81 mg, UNK
  13. TACLONEX [Concomitant]
     Dosage: UNK

REACTIONS (5)
  - Asthma [Recovered/Resolved]
  - Nephrolithiasis [Recovering/Resolving]
  - Infection [Recovered/Resolved]
  - Bronchitis [Unknown]
  - Cystitis [Recovering/Resolving]
